FAERS Safety Report 6887752-6 (Version None)
Quarter: 2010Q3

REPORT INFORMATION
  Report Type: 
  Country: None (occurrence: None)
  Receive Date: 20100730
  Receipt Date: 20100722
  Transmission Date: 20110219
  Serious: Yes (Other)
  Sender: FDA-Public Use
  Company Number: TR-GILEAD-2010-0030537

PATIENT
  Sex: Male
  Weight: 64 kg

DRUGS (2)
  1. VIREAD [Suspect]
     Indication: HEPATITIS B
     Route: 048
     Dates: start: 20100115, end: 20100719
  2. VIREAD [Suspect]
     Dates: start: 20100722

REACTIONS (1)
  - THROMBOCYTOPENIA [None]
